FAERS Safety Report 23888374 (Version 1)
Quarter: 2024Q2

REPORT INFORMATION
  Report Type: Spontaneous
  Country: FR (occurrence: FR)
  Receive Date: 20240523
  Receipt Date: 20240523
  Transmission Date: 20240716
  Serious: Yes (Other)
  Sender: FDA-Public Use
  Company Number: None

PATIENT
  Sex: Male

DRUGS (2)
  1. CHLORHEXIDINE [Suspect]
     Active Substance: CHLORHEXIDINE\CHLORHEXIDINE GLUCONATE
     Indication: Wrong product administered
     Dosage: IN TOTAL
     Route: 013
     Dates: start: 20240308, end: 20240308
  2. SODIUM CHLORIDE [Suspect]
     Active Substance: SODIUM CHLORIDE
     Dates: start: 20240308, end: 20240308

REACTIONS (3)
  - Injection site pain [Recovered/Resolved]
  - Neuropathy peripheral [Recovered/Resolved]
  - Product appearance confusion [Recovered/Resolved]

NARRATIVE: CASE EVENT DATE: 20240308
